FAERS Safety Report 8973430 (Version 1)
Quarter: 2012Q4

REPORT INFORMATION
  Report Type: 
  Country: US (occurrence: US)
  Receive Date: 20121218
  Receipt Date: 20121218
  Transmission Date: 20130627
  Serious: No
  Sender: FDA-Public Use
  Company Number: US-BRISTOL-MYERS SQUIBB COMPANY-16784373

PATIENT
  Age: 76 Year
  Sex: Female
  Weight: 91.15 kg

DRUGS (2)
  1. ABILIFY [Suspect]
     Indication: ANXIETY
     Dates: start: 201111, end: 20120402
  2. ABILIFY [Suspect]
     Indication: DEPRESSION
     Dates: start: 201111, end: 20120402

REACTIONS (1)
  - Tremor [Not Recovered/Not Resolved]
